FAERS Safety Report 18676851 (Version 1)
Quarter: 2020Q4

REPORT INFORMATION
  Report Type: Spontaneous
  Country: FR (occurrence: FR)
  Receive Date: 20201229
  Receipt Date: 20201229
  Transmission Date: 20210114
  Serious: Yes (Congenital Anomaly, Other)
  Sender: FDA-Public Use
  Company Number: NVSC2020FR328632

PATIENT
  Age: 14 Year
  Sex: Male
  Weight: 3.51 kg

DRUGS (3)
  1. LAMOTRIGINE. [Suspect]
     Active Substance: LAMOTRIGINE
     Indication: PRODUCT USED FOR UNKNOWN INDICATION
     Dosage: UNK (LAMICTAL)
     Route: 064
     Dates: start: 20050327, end: 20060102
  2. DEPAKINE CHRONO [Suspect]
     Active Substance: VALPROATE SODIUM
     Indication: FOETAL EXPOSURE DURING PREGNANCY
     Dosage: MATERNAL DOSE: 4 DF, QD
     Route: 064
     Dates: start: 20050327, end: 20060102
  3. FOLIC ACID. [Concomitant]
     Active Substance: FOLIC ACID
     Indication: FOETAL EXPOSURE DURING PREGNANCY
     Dosage: UNK
     Route: 064

REACTIONS (24)
  - Microcephaly [Unknown]
  - Anxiety [Unknown]
  - Learning disorder [Unknown]
  - Strabismus [Unknown]
  - Inguinal hernia [Unknown]
  - Hypermobility syndrome [Unknown]
  - Nasal disorder [Unknown]
  - Hypotonia neonatal [Unknown]
  - Dysmorphism [Unknown]
  - Memory impairment [Unknown]
  - Speech disorder developmental [Unknown]
  - Foetal exposure during pregnancy [Unknown]
  - Talipes [Unknown]
  - Speech sound disorder [Unknown]
  - Behaviour disorder [Unknown]
  - Ear disorder [Unknown]
  - Heart disease congenital [Unknown]
  - Disturbance in social behaviour [Unknown]
  - Psychomotor retardation [Unknown]
  - Myopia [Unknown]
  - Rhinitis [Unknown]
  - Pharyngeal disorder [Unknown]
  - Autism spectrum disorder [Unknown]
  - Hydrocele [Unknown]
